FAERS Safety Report 4828271-8 (Version None)
Quarter: 2005Q4

REPORT INFORMATION
  Report Type: 
  Country: None (occurrence: None)
  Receive Date: 20051114
  Receipt Date: 20051114
  Transmission Date: 20060501
  Serious: Yes (Hospitalization)
  Sender: FDA-Public Use
  Company Number: None

PATIENT
  Sex: Male

DRUGS (3)
  1. GEMZAR [Suspect]
     Indication: PANCREATIC CARCINOMA
     Dosage: 2100 MG Q 2 WKS IV
     Route: 042
     Dates: start: 20051006
  2. OXALIPLATIN 100 MG/M2 [Suspect]
     Dosage: 210 MG Q 2 WKS IV
     Route: 042
     Dates: start: 20051006
  3. LAPATINIB  1500 MG PO QD [Suspect]
     Dosage: 1500MG PO QD
     Route: 042
     Dates: start: 20051006, end: 20051013

REACTIONS (5)
  - FATIGUE [None]
  - LETHARGY [None]
  - NEUTROPHIL COUNT ABNORMAL [None]
  - ORAL INTAKE REDUCED [None]
  - SEPSIS [None]
